FAERS Safety Report 15310365 (Version 3)
Quarter: 2019Q2

REPORT INFORMATION
  Report Type: Report from Study
  Country: US (occurrence: US)
  Receive Date: 20180823
  Receipt Date: 20190402
  Transmission Date: 20190711
  Serious: Yes (Death, Hospitalization)
  Sender: FDA-Public Use
  Company Number: US-ROCHE-2171421

PATIENT
  Age: 65 Year
  Sex: Female
  Weight: 46.76 kg

DRUGS (7)
  1. PROCHLORPERAZINE. [Concomitant]
     Active Substance: PROCHLORPERAZINE
     Indication: NAUSEA
     Route: 065
     Dates: start: 20180726
  2. ATEZOLIZUMAB. [Suspect]
     Active Substance: ATEZOLIZUMAB
     Indication: TRIPLE NEGATIVE BREAST CANCER
     Dosage: MOST RECENT DOSE OF ATEZOLIZUMAB PRIOR TO ONSET OF EVENT SEIZURE ON 04/SEP/2018
     Route: 042
     Dates: start: 20180731
  3. ONDANSETRAN [Concomitant]
     Active Substance: ONDANSETRON HYDROCHLORIDE
     Indication: NAUSEA
  4. TRAMADOL. [Concomitant]
     Active Substance: TRAMADOL
     Indication: PAIN
     Route: 065
     Dates: start: 20180904
  5. CHOLECALCIFEROL [Concomitant]
     Active Substance: CHOLECALCIFEROL
  6. CARBOPLATIN. [Suspect]
     Active Substance: CARBOPLATIN
     Indication: TRIPLE NEGATIVE BREAST CANCER
     Dosage: MOST RECENT DOSE OF CARBOPLATIN PRIOR TO ONSET OF EVENT SEIZURE ON 04/SEP/2018
     Route: 042
     Dates: start: 20180731
  7. IBUPROFEN. [Concomitant]
     Active Substance: IBUPROFEN
     Indication: PYREXIA

REACTIONS (3)
  - Seizure [Recovering/Resolving]
  - Pulmonary hypertension [Fatal]
  - Febrile neutropenia [Recovered/Resolved]

NARRATIVE: CASE EVENT DATE: 20180812
